FAERS Safety Report 18666494 (Version 1)
Quarter: 2020Q4

REPORT INFORMATION
  Report Type: Other
  Country: GB (occurrence: GB)
  Receive Date: 20201227
  Receipt Date: 20201227
  Transmission Date: 20210114
  Serious: Yes (Other)
  Sender: FDA-Public Use
  Company Number: GB-DEXPHARM-20201178

PATIENT
  Sex: Female

DRUGS (1)
  1. OMEPRAZOLE. [Suspect]
     Active Substance: OMEPRAZOLE

REACTIONS (2)
  - Exposure during pregnancy [Unknown]
  - Anaphylactic reaction [Unknown]
